FAERS Safety Report 16881670 (Version 2)
Quarter: 2020Q1

REPORT INFORMATION
  Report Type: Spontaneous
  Country: US (occurrence: US)
  Receive Date: 20191003
  Receipt Date: 20200324
  Transmission Date: 20200409
  Serious: Yes (Other)
  Sender: FDA-Public Use
  Company Number: US-ASTRAZENECA-2019SF39072

PATIENT
  Age: 63 Year
  Sex: Female
  Weight: 95.2 kg

DRUGS (44)
  1. PREVACID [Suspect]
     Active Substance: LANSOPRAZOLE
     Indication: DYSPEPSIA
     Route: 065
     Dates: start: 2002, end: 2018
  2. BENADRYL [Concomitant]
     Active Substance: DIPHENHYDRAMINE HYDROCHLORIDE
     Indication: INSOMNIA
  3. LEVOCETIRIZINE [Concomitant]
     Active Substance: LEVOCETIRIZINE
  4. SYNTHROID [Concomitant]
     Active Substance: LEVOTHYROXINE SODIUM
     Dates: start: 20010724
  5. ULTRAM [Concomitant]
     Active Substance: TRAMADOL HYDROCHLORIDE
     Dates: start: 20010518
  6. DEXILANT [Suspect]
     Active Substance: DEXLANSOPRAZOLE
     Indication: DYSPEPSIA
     Route: 065
     Dates: start: 2000, end: 2016
  7. DEXILANT [Suspect]
     Active Substance: DEXLANSOPRAZOLE
     Indication: DYSPEPSIA
     Route: 065
     Dates: start: 2002, end: 2016
  8. JANUVIA [Concomitant]
     Active Substance: SITAGLIPTIN PHOSPHATE
  9. NORCO [Concomitant]
     Active Substance: ACETAMINOPHEN\HYDROCODONE BITARTRATE
     Dates: start: 20020214
  10. NAMENDA [Concomitant]
     Active Substance: MEMANTINE HYDROCHLORIDE
  11. HYDROXYZINE [Concomitant]
     Active Substance: HYDROXYZINE HYDROCHLORIDE
     Dates: start: 20010518
  12. MONTELUKAST [Concomitant]
     Active Substance: MONTELUKAST SODIUM
  13. TRAMADOL. [Concomitant]
     Active Substance: TRAMADOL
  14. METHYLPREDNISOLONE. [Concomitant]
     Active Substance: METHYLPREDNISOLONE
     Dates: start: 20010316
  15. NEXIUM [Suspect]
     Active Substance: ESOMEPRAZOLE MAGNESIUM
     Indication: DYSPEPSIA
     Route: 048
     Dates: start: 2002, end: 2018
  16. OLANZAPINE. [Concomitant]
     Active Substance: OLANZAPINE
  17. NASONEX [Concomitant]
     Active Substance: MOMETASONE FUROATE
  18. VASCEPA [Concomitant]
     Active Substance: ICOSAPENT ETHYL
  19. VENTOLIN [Concomitant]
     Active Substance: ALBUTEROL SULFATE
  20. XARELTO [Concomitant]
     Active Substance: RIVAROXABAN
  21. AMITRIPTYLINE [Concomitant]
     Active Substance: AMITRIPTYLINE
  22. ZONISAMIDE. [Concomitant]
     Active Substance: ZONISAMIDE
  23. PRILOSEC [Suspect]
     Active Substance: OMEPRAZOLE MAGNESIUM
     Route: 048
     Dates: start: 2000, end: 2016
  24. DEXILANT [Suspect]
     Active Substance: DEXLANSOPRAZOLE
     Indication: DYSPEPSIA
     Route: 048
     Dates: start: 20161214
  25. INVOKANA [Concomitant]
     Active Substance: CANAGLIFLOZIN
  26. LINZESS [Concomitant]
     Active Substance: LINACLOTIDE
  27. LEVOTHYROXINE. [Concomitant]
     Active Substance: LEVOTHYROXINE
  28. PROMETHAZINE [Concomitant]
     Active Substance: PROMETHAZINE HYDROCHLORIDE
  29. CARISOPRODOL. [Concomitant]
     Active Substance: CARISOPRODOL
     Dates: start: 20010316
  30. TEMAZEPAM. [Concomitant]
     Active Substance: TEMAZEPAM
     Dates: start: 20010316
  31. NEXIUM [Suspect]
     Active Substance: ESOMEPRAZOLE MAGNESIUM
     Indication: DYSPEPSIA
     Route: 048
     Dates: start: 2000, end: 2016
  32. GLIMEPIRIDE. [Concomitant]
     Active Substance: GLIMEPIRIDE
  33. SIMVASTATIN. [Concomitant]
     Active Substance: SIMVASTATIN
  34. TRICOR [Concomitant]
     Active Substance: FENOFIBRATE
     Dates: start: 20010724
  35. LORAZEPAM. [Concomitant]
     Active Substance: LORAZEPAM
     Dates: start: 20020214
  36. NEXIUM [Suspect]
     Active Substance: ESOMEPRAZOLE MAGNESIUM
     Indication: DYSPEPSIA
     Route: 048
     Dates: start: 20090703
  37. BEPREVE [Concomitant]
     Active Substance: BEPOTASTINE BESILATE
  38. REPAGLINIDE. [Concomitant]
     Active Substance: REPAGLINIDE
  39. VENLAFAXINE [Concomitant]
     Active Substance: VENLAFAXINE HYDROCHLORIDE
  40. VITAMIN D [Concomitant]
     Active Substance: VITAMIN D NOS
  41. CYCLOBENZAPRINE. [Concomitant]
     Active Substance: CYCLOBENZAPRINE
  42. GABAPENTIN. [Concomitant]
     Active Substance: GABAPENTIN
  43. LISINOPRIL. [Concomitant]
     Active Substance: LISINOPRIL
  44. MODAFINIL. [Concomitant]
     Active Substance: MODAFINIL

REACTIONS (2)
  - Acute kidney injury [Recovered/Resolved]
  - Chronic kidney disease [Recovered/Resolved]

NARRATIVE: CASE EVENT DATE: 2015
